FAERS Safety Report 8242571-3 (Version None)
Quarter: 2012Q1

REPORT INFORMATION
  Report Type: 
  Country: None (occurrence: None)
  Receive Date: 20120329
  Receipt Date: 20120322
  Transmission Date: 20120608
  Serious: Yes (Other)
  Sender: FDA-Public Use
  Company Number: PHHO2010IT07481

PATIENT
  Sex: Male
  Weight: 79 kg

DRUGS (1)
  1. FTY [Suspect]
     Indication: RELAPSING-REMITTING MULTIPLE SCLEROSIS
     Dosage: UNK M, UNK
     Route: 048
     Dates: start: 20080318, end: 20100315

REACTIONS (2)
  - BASAL CELL CARCINOMA [None]
  - SKIN LESION [None]
